FAERS Safety Report 4984888-1 (Version None)
Quarter: 2006Q1

REPORT INFORMATION
  Report Type: 
  Country: None (occurrence: None)
  Receive Date: 20060307
  Receipt Date: 20050623
  Transmission Date: 20060701
  Serious: Yes (Other)
  Sender: FDA-Public Use
  Company Number: 2005AD000065

PATIENT
  Sex: Female

DRUGS (5)
  1. KEFLEX [Suspect]
  2. ZIAC [Concomitant]
  3. NASONEX [Concomitant]
  4. ZYRTEC [Concomitant]
  5. CARDIZEM [Concomitant]

REACTIONS (1)
  - ANAPHYLACTIC REACTION [None]
